FAERS Safety Report 7390465-8 (Version None)
Quarter: 2011Q2

REPORT INFORMATION
  Report Type: 
  Country: None (occurrence: None)
  Receive Date: 20110401
  Receipt Date: 20110322
  Transmission Date: 20111010
  Serious: Yes (Hospitalization, Other)
  Sender: FDA-Public Use
  Company Number: BE-GENENTECH-314282

PATIENT
  Sex: Female

DRUGS (8)
  1. MABTHERA [Suspect]
     Dosage: 2 G, UNK
     Route: 042
     Dates: start: 20090122
  2. DAFALGAN CODEINE [Concomitant]
     Indication: RHEUMATOID ARTHRITIS
  3. MABTHERA [Suspect]
     Dosage: 2 G, UNK
     Route: 042
     Dates: start: 20100907, end: 20100901
  4. FELDEN [Concomitant]
     Indication: RHEUMATOID ARTHRITIS
     Dosage: 20 MG, UNK
     Route: 048
  5. MABTHERA [Suspect]
     Dosage: 2 G, UNK
     Route: 042
     Dates: start: 20100816
  6. PREDNISOLONE [Concomitant]
     Indication: RHEUMATOID ARTHRITIS
     Dosage: 5 MG, UNK
     Route: 048
  7. MABTHERA [Suspect]
     Indication: RHEUMATOID ARTHRITIS
     Dosage: 1 G, UNK
     Route: 042
     Dates: start: 20090108
  8. LEDERTREXATE [Concomitant]
     Indication: RHEUMATOID ARTHRITIS
     Dosage: 15 MG, UNK
     Route: 048
     Dates: start: 20010101

REACTIONS (8)
  - ERYTHEMA [None]
  - SKIN REACTION [None]
  - HYPERTENSIVE CRISIS [None]
  - ESCHERICHIA URINARY TRACT INFECTION [None]
  - LEUKOCYTOCLASTIC VASCULITIS [None]
  - ANAPHYLACTIC SHOCK [None]
  - DYSPNOEA [None]
  - HYPOXIA [None]
